FAERS Safety Report 7036756-1 (Version None)
Quarter: 2010Q4

REPORT INFORMATION
  Report Type: 
  Country: None (occurrence: None)
  Receive Date: 20101011
  Receipt Date: 20100929
  Transmission Date: 20110411
  Serious: Yes (Hospitalization)
  Sender: FDA-Public Use
  Company Number: FR-ELI_LILLY_AND_COMPANY-FR201010000135

PATIENT
  Age: 71 Year
  Sex: Male

DRUGS (14)
  1. HUMALOG [Suspect]
     Indication: DIABETES MELLITUS
     Dosage: UNK, 2/D
     Dates: start: 20100906
  2. HUMALOG MIX 75/25 [Suspect]
     Indication: DIABETES MELLITUS
     Dates: start: 20100804
  3. LANTUS [Concomitant]
     Indication: DIABETES MELLITUS
     Dates: end: 20100804
  4. VELMETIA [Concomitant]
  5. NOVONORM [Concomitant]
  6. ACEBUTOLOL [Concomitant]
  7. DILTIAZEM [Concomitant]
  8. CLOPIDOGREL [Concomitant]
  9. KARDEGIC [Concomitant]
  10. PARIET [Concomitant]
  11. TAHOR [Concomitant]
  12. ALLOPURINOL [Concomitant]
  13. TRIMEBUTINE [Concomitant]
  14. SEROPLEX [Concomitant]

REACTIONS (2)
  - HYPERGLYCAEMIA [None]
  - WRONG DRUG ADMINISTERED [None]
